FAERS Safety Report 15493014 (Version 1)
Quarter: 2018Q4

REPORT INFORMATION
  Report Type: Spontaneous
  Country: US (occurrence: US)
  Receive Date: 20181004
  Receipt Date: 20181004
  Transmission Date: 20190205
  Serious: Yes (Other)
  Sender: FDA-Public Use
  Company Number: None

PATIENT
  Age: 62 Year
  Sex: Female
  Weight: 60.75 kg

DRUGS (5)
  1. HUMIRA [Suspect]
     Active Substance: ADALIMUMAB
     Dosage: ?          OTHER FREQUENCY:EVERY WEEK;?
     Route: 058
  2. ENBREL [Suspect]
     Active Substance: ETANERCEPT
  3. METHOTREXATE. [Suspect]
     Active Substance: METHOTREXATE
  4. XELODA [Concomitant]
     Active Substance: CAPECITABINE
  5. VITAMIN D [Concomitant]
     Active Substance: CHOLECALCIFEROL

REACTIONS (4)
  - Ankylosing spondylitis [None]
  - Psoriasis [None]
  - Colitis ulcerative [None]
  - Breast cancer [None]

NARRATIVE: CASE EVENT DATE: 20170808
